FAERS Safety Report 17682708 (Version 2)
Quarter: 2020Q2

REPORT INFORMATION
  Report Type: Spontaneous
  Country: US (occurrence: US)
  Receive Date: 20200419
  Receipt Date: 20200615
  Transmission Date: 20200714
  Serious: No
  Sender: FDA-Public Use
  Company Number: US-ASTRAZENECA-2020SE51837

PATIENT
  Sex: Male
  Weight: 135.2 kg

DRUGS (1)
  1. BYDUREON BCISE [Suspect]
     Active Substance: EXENATIDE
     Indication: DIABETES MELLITUS
     Route: 058
     Dates: start: 2019

REACTIONS (6)
  - Drug dose omission by device [Unknown]
  - Incorrect dose administered by device [Unknown]
  - Feeling abnormal [Unknown]
  - Device leakage [Unknown]
  - Wrong technique in device usage process [Unknown]
  - Intentional device misuse [Unknown]
